FAERS Safety Report 8790295 (Version 1)
Quarter: 2012Q4

REPORT INFORMATION
  Report Type: 
  Country: JP (occurrence: JP)
  Receive Date: 20120917
  Receipt Date: 20120917
  Transmission Date: 20130627
  Serious: Yes (Other)
  Sender: FDA-Public Use
  Company Number: PHHY2012JP078781

PATIENT
  Age: 61 Year
  Sex: Male

DRUGS (1)
  1. SPIRONOLACTONE [Suspect]
     Indication: HYPERTENSION

REACTIONS (3)
  - Leiomyoma [Unknown]
  - Gynaecomastia [Unknown]
  - Nipple pain [Unknown]
